FAERS Safety Report 7767997-3 (Version None)
Quarter: 2011Q3

REPORT INFORMATION
  Report Type: 
  Country: None (occurrence: None)
  Receive Date: 20110922
  Receipt Date: 20110316
  Transmission Date: 20111222
  Serious: No
  Sender: FDA-Public Use
  Company Number: US-ASTRAZENECA-2011SE15248

PATIENT
  Sex: Female

DRUGS (2)
  1. SEROQUEL [Suspect]
     Indication: SLEEP DISORDER
     Route: 048
     Dates: start: 20100801
  2. MELATONIN [Concomitant]

REACTIONS (4)
  - DRUG DOSE OMISSION [None]
  - ABNORMAL DREAMS [None]
  - SOMNOLENCE [None]
  - OFF LABEL USE [None]
